FAERS Safety Report 15595226 (Version 1)
Quarter: 2018Q4

REPORT INFORMATION
  Report Type: Spontaneous
  Country: US (occurrence: US)
  Receive Date: 20181107
  Receipt Date: 20181107
  Transmission Date: 20190205
  Serious: Yes (Other)
  Sender: FDA-Public Use
  Company Number: US-INSYS THERAPEUTICS, INC-INS201810-000408

PATIENT
  Sex: Female

DRUGS (9)
  1. ACTIQ [Suspect]
     Active Substance: FENTANYL CITRATE
     Indication: PAIN IN EXTREMITY
  2. SUBSYS [Suspect]
     Active Substance: FENTANYL
     Indication: PAIN IN EXTREMITY
     Route: 060
     Dates: start: 201307
  3. SUBSYS [Suspect]
     Active Substance: FENTANYL
  4. SUBSYS [Suspect]
     Active Substance: FENTANYL
     Dates: start: 20140209, end: 201411
  5. SUBSYS [Suspect]
     Active Substance: FENTANYL
     Dates: start: 20130925
  6. SUBSYS [Suspect]
     Active Substance: FENTANYL
     Route: 060
     Dates: start: 20130719
  7. SUBSYS [Suspect]
     Active Substance: FENTANYL
     Dates: end: 201504
  8. OPANA [Suspect]
     Active Substance: OXYMORPHONE HYDROCHLORIDE
     Indication: PAIN IN EXTREMITY
     Dates: start: 201411
  9. OPANA [Suspect]
     Active Substance: OXYMORPHONE HYDROCHLORIDE
     Dates: start: 20141124

REACTIONS (7)
  - Feeling abnormal [Unknown]
  - Somnolence [Unknown]
  - Drug dependence [Unknown]
  - Coma [Unknown]
  - Injury [Unknown]
  - Loss of consciousness [Unknown]
  - Withdrawal syndrome [Unknown]
